FAERS Safety Report 6529494-2 (Version None)
Quarter: 2010Q1

REPORT INFORMATION
  Report Type: 
  Country: None (occurrence: None)
  Receive Date: 20100107
  Receipt Date: 20100104
  Transmission Date: 20100710
  Serious: Yes (Death, Other)
  Sender: FDA-Public Use
  Company Number: PHEH2008US09068

PATIENT
  Sex: Female

DRUGS (18)
  1. AREDIA [Suspect]
  2. ZOMETA [Suspect]
     Indication: HYPERCALCAEMIA
     Dosage: MONTHLY
     Route: 042
  3. METFORMIN HYDROCHLORIDE [Concomitant]
  4. LISINOPRIL [Suspect]
  5. NABUMETONE [Concomitant]
  6. HYDROCHLOROTHIAZIDE [Concomitant]
  7. KLOR-CON [Concomitant]
  8. GEMFIBROZIL [Concomitant]
  9. MULTI-VITAMINS [Concomitant]
  10. CALCIUM [Concomitant]
  11. PRILOSEC [Concomitant]
  12. VICODIN [Concomitant]
  13. AROMASIN [Concomitant]
     Dosage: 25MG DAILY
  14. TAMOXIFEN CITRATE [Concomitant]
  15. ZESTRIL [Concomitant]
     Indication: HYPERTENSION
     Dosage: 10 MG / DAILY
  16. ORUVAIL [Concomitant]
     Dosage: 200 MG / DAILY
     Route: 048
  17. ADVIL [Concomitant]
     Dosage: UNK
  18. PRINIVIL [Concomitant]
     Dosage: UNK

REACTIONS (22)
  - ANHEDONIA [None]
  - ANKLE FRACTURE [None]
  - ANXIETY [None]
  - BASAL CELL CARCINOMA [None]
  - BONE DISORDER [None]
  - CERVIX HAEMORRHAGE UTERINE [None]
  - DISABILITY [None]
  - EPICONDYLITIS [None]
  - HYPERCHOLESTEROLAEMIA [None]
  - HYPERTENSION [None]
  - INJURY [None]
  - MALIGNANT NEOPLASM PROGRESSION [None]
  - OSTEOARTHRITIS [None]
  - OSTEONECROSIS [None]
  - PAIN [None]
  - POLYP [None]
  - ROTATOR CUFF SYNDROME [None]
  - SEBORRHOEIC KERATOSIS [None]
  - SYNOVIAL CYST [None]
  - TOOTH ABSCESS [None]
  - UTERINE CERVICAL SQUAMOUS METAPLASIA [None]
  - UTERINE HAEMORRHAGE [None]
